FAERS Safety Report 10303158 (Version 1)
Quarter: 2014Q3

REPORT INFORMATION
  Report Type: Spontaneous
  Country: US (occurrence: None)
  Receive Date: 20140710
  Receipt Date: 20140710
  Transmission Date: 20150326
  Serious: Yes (Hospitalization, Other)
  Sender: FDA-Public Use
  Company Number: 2014-US-007034

PATIENT
  Age: 79 Year
  Sex: Female
  Weight: 75.7 kg

DRUGS (16)
  1. CLOBETASOL (CLOBETASOL) [Concomitant]
     Active Substance: CLOBETASOL
  2. DEXLANSOPRAZOLE (DEXALANSOPRAZOLE) [Concomitant]
  3. XYREM [Suspect]
     Active Substance: SODIUM OXYBATE
     Indication: CATAPLEXY
     Route: 048
     Dates: start: 200501, end: 2013
  4. PRAMIPEXOLE [Concomitant]
     Active Substance: PRAMIPEXOLE
  5. SINGULAIR [Concomitant]
     Active Substance: MONTELUKAST SODIUM
  6. CYMBALTA [Concomitant]
     Active Substance: DULOXETINE HYDROCHLORIDE
  7. PRAVASTATIN [Concomitant]
     Active Substance: PRAVASTATIN\PRAVASTATIN SODIUM
  8. CLOPIDOGREL [Concomitant]
     Active Substance: CLOPIDOGREL BISULFATE
  9. LORAZEPAM (LORAZEPAM) [Concomitant]
     Active Substance: LORAZEPAM
  10. XYREM [Suspect]
     Active Substance: SODIUM OXYBATE
     Indication: NARCOLEPSY
     Route: 048
     Dates: start: 200501, end: 2013
  11. METHYLPHENIDATE [Concomitant]
     Active Substance: METHYLPHENIDATE
  12. ESTRADIOL (ESTRADIOL CIPIONATE) [Concomitant]
  13. NITROGLYCERIN (NITROGLYCERIN) [Concomitant]
  14. CYCLOBENZAPRINE (CYCLOBENZAPRINE) [Concomitant]
     Active Substance: CYCLOBENZAPRINE
  15. ATENOLOL/CHLORTHALIDONE (ATENOLOL, CHLORTALIDONE) [Concomitant]
  16. HYDROCODONE/ACETAMINOPHEN (HYDROCODONE BITARTRATE, PARACETAMOL) [Concomitant]

REACTIONS (3)
  - Spinal operation [None]
  - Back disorder [None]
  - Condition aggravated [None]

NARRATIVE: CASE EVENT DATE: 20140613
